FAERS Safety Report 8473477-2 (Version None)
Quarter: 2012Q2

REPORT INFORMATION
  Report Type: 
  Country: None (occurrence: None)
  Receive Date: 20120625
  Receipt Date: 20120625
  Transmission Date: 20120825
  Serious: Yes (Hospitalization)
  Sender: FDA-Public Use
  Company Number: None

PATIENT
  Age: 21 Year
  Sex: Male

DRUGS (1)
  1. DIPHENHYDRAMINE HCL [Suspect]
     Indication: INSOMNIA
     Dosage: 8 CAPSULES ONCE PO
     Route: 048

REACTIONS (4)
  - HEART RATE INCREASED [None]
  - PSYCHOTIC DISORDER [None]
  - BLOOD CREATININE INCREASED [None]
  - MUCOSAL DRYNESS [None]
